FAERS Safety Report 8276167-4 (Version None)
Quarter: 2012Q2

REPORT INFORMATION
  Report Type: 
  Country: None (occurrence: None)
  Receive Date: 20120405
  Receipt Date: 20120326
  Transmission Date: 20120825
  Serious: Yes (Death, Life-Threatening, Hospitalization, Other)
  Sender: FDA-Public Use
  Company Number: 2012MA003977

PATIENT
  Sex: Female
  Weight: 59 kg

DRUGS (38)
  1. EVISTA [Concomitant]
  2. PREVACID [Concomitant]
  3. WARFARIN SODIUM [Concomitant]
  4. ATORVASTRATIN [Concomitant]
  5. ENALAPRIL MALEATE [Concomitant]
  6. LEXAPRO [Concomitant]
  7. LISINOPRIL [Concomitant]
  8. NEXIUM [Concomitant]
  9. VERSED [Concomitant]
  10. ARICEPT [Concomitant]
  11. CALCIUM CARBONATE [Concomitant]
  12. COREG [Concomitant]
  13. ESCITALOPRAM [Concomitant]
  14. GATIFLOXACIN [Concomitant]
  15. MYLANTA [Concomitant]
  16. TEMAZEPAM [Concomitant]
  17. ACETAMINIPHEN [Concomitant]
  18. ETOMIDATE [Concomitant]
  19. FENTANYL-100 [Concomitant]
  20. LEVOTHYROXINE SODIUM [Concomitant]
  21. LIPITOR [Concomitant]
  22. TOPROL-XL [Concomitant]
  23. CODEINE SULFATE [Concomitant]
  24. CARVEDILOL [Concomitant]
  25. COUMADIN [Concomitant]
  26. DOCUSATE [Concomitant]
  27. FUROSEMIDE [Concomitant]
  28. AMIODARONE HCL [Concomitant]
  29. MAG-OX [Concomitant]
  30. OMEPRAZOLE [Concomitant]
  31. RALOXIFENE HCL [Concomitant]
  32. CALCIUM CARBONATE [Concomitant]
  33. LASIX [Concomitant]
  34. PRIMACOR [Concomitant]
  35. DIGOXIN [Suspect]
     Indication: PRODUCT USED FOR UNKNOWN INDICATION
     Dosage: UNK, PO
     Route: 048
     Dates: start: 20030101, end: 20080601
  36. HEPARIN [Concomitant]
  37. POTASSIUM CHLORIDE [Concomitant]
  38. SPIRONOLACTONE [Concomitant]

REACTIONS (87)
  - ARRHYTHMIA [None]
  - TOXICITY TO VARIOUS AGENTS [None]
  - GASTROOESOPHAGEAL REFLUX DISEASE [None]
  - SLEEP DISORDER [None]
  - DILATATION VENTRICULAR [None]
  - PULMONARY VALVE INCOMPETENCE [None]
  - TRICUSPID VALVE INCOMPETENCE [None]
  - CARDIAC DISORDER [None]
  - BUNDLE BRANCH BLOCK LEFT [None]
  - CARDIAC FAILURE CONGESTIVE [None]
  - VOMITING [None]
  - GASTRITIS [None]
  - BUNDLE BRANCH BLOCK [None]
  - CEREBRAL ARTERY OCCLUSION [None]
  - INITIAL INSOMNIA [None]
  - IMPATIENCE [None]
  - MUSCLE DISORDER [None]
  - ENCEPHALOMALACIA [None]
  - CEREBRAL ATROPHY [None]
  - INTERNATIONAL NORMALISED RATIO INCREASED [None]
  - CEREBRAL INFARCTION [None]
  - ORTHOSTATIC HYPOTENSION [None]
  - ANXIETY [None]
  - APHASIA [None]
  - CHEST DISCOMFORT [None]
  - MULTIPLE INJURIES [None]
  - SYNCOPE [None]
  - PROCTITIS [None]
  - GENERALISED OEDEMA [None]
  - FATIGUE [None]
  - DYSPNOEA [None]
  - ABDOMINAL DISTENSION [None]
  - DYSPNOEA EXERTIONAL [None]
  - MEMORY IMPAIRMENT [None]
  - HEAD INJURY [None]
  - VASCULAR DEMENTIA [None]
  - MOTOR DYSFUNCTION [None]
  - MUSCULAR WEAKNESS [None]
  - CEREBRAL SMALL VESSEL ISCHAEMIC DISEASE [None]
  - CARDIOMEGALY [None]
  - RIGHT VENTRICULAR FAILURE [None]
  - MITRAL VALVE STENOSIS [None]
  - PAIN [None]
  - CHEST PAIN [None]
  - HYPOTENSION [None]
  - MYOCARDIAL INFARCTION [None]
  - UNEVALUABLE EVENT [None]
  - ACTIVITIES OF DAILY LIVING IMPAIRED [None]
  - DEPRESSION [None]
  - SENSORY DISTURBANCE [None]
  - PELVIC PAIN [None]
  - INFERIOR VENA CAVA DILATATION [None]
  - CEREBELLAR ATROPHY [None]
  - MYOCARDIAL ISCHAEMIA [None]
  - DIARRHOEA [None]
  - CONSTIPATION [None]
  - OESOPHAGITIS [None]
  - VENTRICULAR TACHYCARDIA [None]
  - COUGH [None]
  - DISTURBANCE IN ATTENTION [None]
  - GASTROINTESTINAL HAEMORRHAGE [None]
  - CAROTID ARTERY DISEASE [None]
  - CHRONIC OBSTRUCTIVE PULMONARY DISEASE [None]
  - HYPERHIDROSIS [None]
  - ATRIAL FIBRILLATION [None]
  - ANORECTAL DISORDER [None]
  - OEDEMA [None]
  - DYSPEPSIA [None]
  - GASTRIC DISORDER [None]
  - DISTRACTIBILITY [None]
  - COGNITIVE DISORDER [None]
  - HEADACHE [None]
  - COORDINATION ABNORMAL [None]
  - HYPERTENSION [None]
  - EJECTION FRACTION DECREASED [None]
  - INTRACRANIAL PRESSURE INCREASED [None]
  - NAUSEA [None]
  - ABDOMINAL PAIN UPPER [None]
  - TRANSIENT ISCHAEMIC ATTACK [None]
  - NON-CARDIAC CHEST PAIN [None]
  - ORTHOPNOEA [None]
  - DYSPNOEA PAROXYSMAL NOCTURNAL [None]
  - CARDIAC MURMUR [None]
  - FEAR [None]
  - RESPIRATORY RATE INCREASED [None]
  - CEREBROVASCULAR ACCIDENT [None]
  - RIGHT ATRIAL DILATATION [None]
